FAERS Safety Report 25096896 (Version 1)
Quarter: 2025Q1

REPORT INFORMATION
  Report Type: Other
  Country: IR (occurrence: IR)
  Receive Date: 20250319
  Receipt Date: 20250319
  Transmission Date: 20250409
  Serious: Yes (Hospitalization, Other)
  Sender: B BRAUN
  Company Number: IR-B.Braun Medical Inc.-2173246

PATIENT
  Age: 19 Year
  Sex: Male

DRUGS (3)
  1. CEFTAZIDIME [Suspect]
     Active Substance: CEFTAZIDIME
     Indication: Sepsis
  2. VANCOMYCIN [Suspect]
     Active Substance: VANCOMYCIN
  3. AMPHOTERICIN B [Suspect]
     Active Substance: AMPHOTERICIN B

REACTIONS (1)
  - Jarisch-Herxheimer reaction [Recovering/Resolving]
